FAERS Safety Report 16389175 (Version 3)
Quarter: 2019Q2

REPORT INFORMATION
  Report Type: Spontaneous
  Country: US (occurrence: US)
  Receive Date: 20190604
  Receipt Date: 20190614
  Transmission Date: 20190711
  Serious: No
  Sender: FDA-Public Use
  Company Number: US-IPSEN BIOPHARMACEUTICALS, INC.-2019-06845

PATIENT
  Sex: Male
  Weight: 79.37 kg

DRUGS (18)
  1. AFINITOR [Suspect]
     Active Substance: EVEROLIMUS
     Indication: PRODUCT USED FOR UNKNOWN INDICATION
  2. UPTRAVI [Suspect]
     Active Substance: SELEXIPAG
  3. MYRBETRIQ [Concomitant]
     Active Substance: MIRABEGRON
  4. CARVEDILOL. [Concomitant]
     Active Substance: CARVEDILOL
  5. PROAIR HSA [Concomitant]
  6. TRAMADOL. [Concomitant]
     Active Substance: TRAMADOL
  7. IRBESARTAN. [Concomitant]
     Active Substance: IRBESARTAN
  8. TUMS [Concomitant]
     Active Substance: CALCIUM CARBONATE
  9. AMLODIPINE [Concomitant]
     Active Substance: AMLODIPINE BESYLATE
  10. MINOXIDIL. [Concomitant]
     Active Substance: MINOXIDIL
  11. SOMATULINE DEPOT [Suspect]
     Active Substance: LANREOTIDE ACETATE
     Indication: CARCINOID SYNDROME
     Dosage: UNDER THE SKIN
     Route: 058
     Dates: start: 20190213
  12. VITAMIN B12 [Concomitant]
     Active Substance: CYANOCOBALAMIN
  13. UPTRAVI [Suspect]
     Active Substance: SELEXIPAG
  14. POTASSIUM CHLORIDE. [Concomitant]
     Active Substance: POTASSIUM CHLORIDE
  15. KETOCONAZOLE. [Concomitant]
     Active Substance: KETOCONAZOLE
  16. VITAMIN D2 [Concomitant]
     Active Substance: ERGOCALCIFEROL
  17. UPTRAVI [Suspect]
     Active Substance: SELEXIPAG
  18. UPTRAVI [Suspect]
     Active Substance: SELEXIPAG

REACTIONS (6)
  - Dyspnoea [Unknown]
  - Headache [Unknown]
  - Muscle spasms [Not Recovered/Not Resolved]
  - Blood count abnormal [Unknown]
  - Fatigue [Not Recovered/Not Resolved]
  - Disturbance in attention [Not Recovered/Not Resolved]
